FAERS Safety Report 11333565 (Version 1)
Quarter: 2015Q3

REPORT INFORMATION
  Report Type: Spontaneous
  Country: US (occurrence: US)
  Receive Date: 20150803
  Receipt Date: 20150803
  Transmission Date: 20151125
  Serious: Yes (Hospitalization, Other)
  Sender: FDA-Public Use
  Company Number: US-ELI_LILLY_AND_COMPANY-US200801004692

PATIENT
  Age: 66 Year
  Sex: Female
  Weight: 69.84 kg

DRUGS (1)
  1. ZYPREXA [Suspect]
     Active Substance: OLANZAPINE
     Dosage: 5 MG, UNK
     Dates: start: 20021204, end: 200406

REACTIONS (6)
  - Diabetes mellitus [Not Recovered/Not Resolved]
  - Blood triglycerides increased [Recovered/Resolved]
  - Polydipsia [Unknown]
  - Hyperglycaemia [Unknown]
  - Blood cholesterol increased [Recovered/Resolved]
  - Diabetic ketoacidosis [Unknown]

NARRATIVE: CASE EVENT DATE: 200310
